FAERS Safety Report 4579999-9 (Version None)
Quarter: 2005Q1

REPORT INFORMATION
  Report Type: 
  Country: None (occurrence: None)
  Receive Date: 20050210
  Receipt Date: 20050125
  Transmission Date: 20050727
  Serious: Yes (Death, Hospitalization)
  Sender: FDA-Public Use
  Company Number: 2005024319

PATIENT
  Sex: Male

DRUGS (1)
  1. CELEBREX [Suspect]
     Indication: RHEUMATOID ARTHRITIS

REACTIONS (7)
  - ANGIOPATHY [None]
  - CEREBROVASCULAR ACCIDENT [None]
  - FALL [None]
  - LOWER LIMB FRACTURE [None]
  - THERAPY NON-RESPONDER [None]
  - THROMBOSIS [None]
  - URINARY TRACT DISORDER [None]
